FAERS Safety Report 5973504-8 (Version None)
Quarter: 2008Q4

REPORT INFORMATION
  Report Type: 
  Country: None (occurrence: None)
  Receive Date: 20081201
  Receipt Date: 20081117
  Transmission Date: 20090506
  Serious: Yes (Life-Threatening)
  Sender: FDA-Public Use
  Company Number: FR-AVENTIS-200814026FR

PATIENT
  Age: 82 Year
  Sex: Female

DRUGS (8)
  1. LASIX [Suspect]
     Route: 048
     Dates: start: 20080601, end: 20080927
  2. CORDARONE [Suspect]
     Indication: ATRIAL FIBRILLATION
     Route: 048
     Dates: start: 20080601, end: 20080927
  3. CORDARONE [Suspect]
     Route: 048
     Dates: start: 20080101
  4. ANAFRANIL [Suspect]
     Indication: DRUG USE FOR UNKNOWN INDICATION
     Route: 048
  5. SINTROM [Concomitant]
     Indication: ATRIAL FIBRILLATION
     Route: 048
     Dates: start: 20080601, end: 20080927
  6. SINTROM [Concomitant]
     Route: 048
     Dates: start: 20080101
  7. DIFFU K [Concomitant]
     Indication: PROPHYLAXIS
     Route: 048
     Dates: start: 20080601, end: 20080927
  8. CORTANCYL [Concomitant]
     Route: 048

REACTIONS (3)
  - DRUG INTERACTION [None]
  - ELECTROCARDIOGRAM QT PROLONGED [None]
  - TORSADE DE POINTES [None]
